FAERS Safety Report 12130000 (Version 1)
Quarter: 2016Q1

REPORT INFORMATION
  Report Type: Other
  Country: US (occurrence: US)
  Receive Date: 20160229
  Receipt Date: 20160229
  Transmission Date: 20160526
  Serious: No
  Sender: FDA-Public Use
  Company Number: US-ACORDA-ACO_23233_2010

PATIENT
  Age: 61 Year
  Sex: Female
  Weight: 90 kg

DRUGS (18)
  1. LUNESTA [Concomitant]
     Active Substance: ESZOPICLONE
     Dosage: DF
  2. PREDNISONE. [Concomitant]
     Active Substance: PREDNISONE
     Dosage: DF, AS NEEDED
  3. DETROL LA [Concomitant]
     Active Substance: TOLTERODINE TARTRATE
     Dosage: DF
  4. PRAVASTATIN [Concomitant]
     Active Substance: PRAVASTATIN\PRAVASTATIN SODIUM
     Dosage: DF
  5. PROAIR HFA [Concomitant]
     Active Substance: ALBUTEROL SULFATE
     Dosage: DF
  6. LEVOTHYROXINE. [Concomitant]
     Active Substance: LEVOTHYROXINE
     Dosage: DF
  7. ALPRAZOLAM. [Concomitant]
     Active Substance: ALPRAZOLAM
     Dosage: DF
  8. LASIX [Concomitant]
     Active Substance: FUROSEMIDE
     Dosage: DF, AS NEEDED
  9. AMPYRA [Suspect]
     Active Substance: DALFAMPRIDINE
     Indication: MULTIPLE SCLEROSIS
     Dosage: 10 MG, BID
     Route: 048
     Dates: start: 20100527
  10. ADVAIR HFA [Concomitant]
     Active Substance: FLUTICASONE PROPIONATE\SALMETEROL XINAFOATE
     Dosage: DF
  11. INSULIN [Concomitant]
     Active Substance: INSULIN NOS
     Dosage: DF
  12. ROPINIROLE. [Concomitant]
     Active Substance: ROPINIROLE
     Dosage: DF
  13. AMPYRA [Suspect]
     Active Substance: DALFAMPRIDINE
     Indication: GAIT DISTURBANCE
  14. CYMBALTA [Concomitant]
     Active Substance: DULOXETINE HYDROCHLORIDE
     Dosage: DF
  15. ATENOLOL. [Concomitant]
     Active Substance: ATENOLOL
     Dosage: DF
  16. KLOR-CON [Concomitant]
     Active Substance: POTASSIUM CHLORIDE
     Dosage: DF
  17. DYAZIDE [Concomitant]
     Active Substance: HYDROCHLOROTHIAZIDE\TRIAMTERENE
     Dosage: DF
  18. GABAPENTIN. [Concomitant]
     Active Substance: GABAPENTIN
     Dosage: DF

REACTIONS (5)
  - Condition aggravated [Not Recovered/Not Resolved]
  - Therapeutic response unexpected [Unknown]
  - Hypoaesthesia [Not Recovered/Not Resolved]
  - Walking aid user [Unknown]
  - Drug effect decreased [Not Recovered/Not Resolved]

NARRATIVE: CASE EVENT DATE: 20100527
